FAERS Safety Report 11814709 (Version 1)
Quarter: 2015Q4

REPORT INFORMATION
  Report Type: Spontaneous
  Country: US (occurrence: None)
  Receive Date: 20151208
  Receipt Date: 20151208
  Transmission Date: 20160305
  Serious: No
  Sender: FDA-Public Use
  Company Number: None

PATIENT
  Age: 45 Year
  Sex: Female
  Weight: 61.24 kg

DRUGS (13)
  1. METOFRMIN [Concomitant]
  2. GLIMEPIRIDE. [Concomitant]
     Active Substance: GLIMEPIRIDE
  3. ACIDOLPHILUS [Concomitant]
  4. MAGNESIUM [Concomitant]
     Active Substance: MAGNESIUM
  5. GUANFACINE HCL ER [Suspect]
     Active Substance: GUANFACINE HYDROCHLORIDE
     Indication: ABNORMAL BEHAVIOUR
     Route: 048
     Dates: start: 201505, end: 20150925
  6. ADVIL AM [Concomitant]
  7. VICTOZA [Concomitant]
     Active Substance: LIRAGLUTIDE
  8. BABY ASPIRIN [Concomitant]
     Active Substance: ASPIRIN
  9. CHEWABLE VITAMIN [Concomitant]
  10. MELARONA [Concomitant]
  11. CHEWABLE CALCIUM [Concomitant]
  12. FISH OIL [Concomitant]
     Active Substance: FISH OIL
  13. ALEVE PM [Concomitant]
     Active Substance: DIPHENHYDRAMINE HYDROCHLORIDE\NAPROXEN SODIUM

REACTIONS (2)
  - Abnormal behaviour [None]
  - Product substitution issue [None]

NARRATIVE: CASE EVENT DATE: 201506
